FAERS Safety Report 7903187-9 (Version None)
Quarter: 2011Q4

REPORT INFORMATION
  Report Type: 
  Country: None (occurrence: None)
  Receive Date: 20111108
  Receipt Date: 20111108
  Transmission Date: 20120403
  Serious: No
  Sender: FDA-Public Use
  Company Number: None

PATIENT

DRUGS (1)
  1. LAMICTAL [Suspect]
     Indication: BIPOLAR DISORDER
     Dosage: 1/2 150MG BID PO
     Route: 048
     Dates: start: 20080101

REACTIONS (4)
  - DELUSION [None]
  - INSOMNIA [None]
  - HALLUCINATION [None]
  - PRODUCT SUBSTITUTION ISSUE [None]
